FAERS Safety Report 5440717-3 (Version None)
Quarter: 2007Q3

REPORT INFORMATION
  Report Type: 
  Country: None (occurrence: None)
  Receive Date: 20070831
  Receipt Date: 20070823
  Transmission Date: 20080115
  Serious: Yes (Disabling, Congenital Anomaly)
  Sender: FDA-Public Use
  Company Number: FR-ABBOTT-07P-056-0414939-00

PATIENT
  Sex: Male

DRUGS (1)
  1. DEPAKINE CHRONO TABLET [Suspect]
     Indication: DRUG EXPOSURE DURING PREGNANCY
     Route: 064

REACTIONS (5)
  - AUTISM SPECTRUM DISORDER [None]
  - DEVELOPMENTAL DELAY [None]
  - DYSPHEMIA [None]
  - NEUROMYOPATHY [None]
  - PSYCHOTIC DISORDER [None]
